FAERS Safety Report 4822161-2 (Version None)
Quarter: 2005Q4

REPORT INFORMATION
  Report Type: 
  Country: None (occurrence: None)
  Receive Date: 20051103
  Receipt Date: 20051014
  Transmission Date: 20060501
  Serious: Yes (Death)
  Sender: FDA-Public Use
  Company Number: GBS051018762

PATIENT
  Age: 31 Year
  Sex: Male

DRUGS (2)
  1. PROZAC [Suspect]
     Route: 048
  2. MOCLOBEMIDE [Concomitant]

REACTIONS (1)
  - DRUG ABUSER [None]
